FAERS Safety Report 8781712 (Version 1)
Quarter: 2012Q4

REPORT INFORMATION
  Report Type: 
  Country: US (occurrence: US)
  Receive Date: 20120913
  Receipt Date: 20120913
  Transmission Date: 20130627
  Serious: Yes (Death, Hospitalization)
  Sender: FDA-Public Use
  Company Number: US-JNJFOC-20120902793

PATIENT
  Age: 80 None
  Sex: Female
  Weight: 35.83 kg

DRUGS (2)
  1. REMICADE [Suspect]
     Indication: RHEUMATOID ARTHRITIS
     Dosage: about 3-4 years ago
     Route: 042
     Dates: end: 2012
  2. UNKNOWN MEDICATION [Concomitant]
     Route: 065

REACTIONS (4)
  - Pneumonia [Fatal]
  - Pericardial effusion [Fatal]
  - Pulmonary oedema [Fatal]
  - Cardiac disorder [Unknown]
